FAERS Safety Report 10172024 (Version 3)
Quarter: 2014Q2

REPORT INFORMATION
  Report Type: Spontaneous
  Country: US (occurrence: US)
  Receive Date: 20140515
  Receipt Date: 20140630
  Transmission Date: 20141212
  Serious: No
  Sender: FDA-Public Use
  Company Number: US-PFIZER INC-2014129638

PATIENT
  Age: 30 Year
  Sex: Female
  Weight: 63.49 kg

DRUGS (7)
  1. LYRICA [Suspect]
     Indication: FIBROMYALGIA
     Dosage: 150 MG, DAILY
     Route: 048
     Dates: start: 201206, end: 2013
  2. LYRICA [Suspect]
     Dosage: 150 MG, 2X/DAY
     Route: 048
     Dates: start: 2013, end: 201404
  3. LYRICA [Suspect]
     Dosage: 150 MG, DAILY
     Route: 048
     Dates: start: 201404
  4. NORTRIPTYLINE [Concomitant]
     Dosage: 75 MG, 1X/DAY
  5. NORCO [Concomitant]
     Dosage: 5/325, 3X/DAY
  6. TRAMADOL [Concomitant]
     Dosage: 50 MG, 1X/DAY
  7. ALPRAZOLAM [Concomitant]
     Dosage: 0.5, 2X/DAY

REACTIONS (2)
  - Anxiety [Unknown]
  - Drug withdrawal syndrome [Unknown]
